FAERS Safety Report 8805097 (Version 2)
Quarter: 2014Q1

REPORT INFORMATION
  Report Type: Report from Study
  Country: US (occurrence: US)
  Receive Date: 20120924
  Receipt Date: 20140107
  Transmission Date: 20141002
  Serious: Yes (Death)
  Sender: FDA-Public Use
  Company Number: US-ROCHE-1103750

PATIENT
  Age: 78 Year
  Sex: Female

DRUGS (13)
  1. AVASTIN [Suspect]
     Indication: BONE CANCER
     Dosage: 13.95 MG/KG IV DOSED AT 93 % OF 15 MG/KG (LAST DOSE ADMINISTERED ON 09/APR/2010)
     Route: 042
     Dates: start: 20091211
  2. AVASTIN [Suspect]
     Indication: NEOPLASM MALIGNANT
     Dosage: 13.95 MG/KG IV DOSED AT 93 % OF 15 MG/KG
     Route: 042
     Dates: start: 20100115
  3. AVASTIN [Suspect]
     Indication: BREAST CANCER
     Dosage: 13.95 MG/KG IV DOSED AT 93 % OF 15 MG/KG
     Route: 042
     Dates: start: 20100212
  4. AVASTIN [Suspect]
     Dosage: 13.95 MG/KG IV DOSED AT 93 % OF 15 MG/KG
     Route: 042
     Dates: start: 20100312
  5. AVASTIN [Suspect]
     Dosage: 13.95 MG/KG IV DOSED AT 93 % OF 15 MG/KG
     Route: 042
     Dates: start: 20100409
  6. XELODA [Suspect]
     Indication: BREAST CANCER
     Route: 065
  7. XELODA [Suspect]
     Indication: METASTASES TO NERVOUS SYSTEM
  8. TAXOL [Concomitant]
  9. FASLODEX [Concomitant]
     Route: 030
     Dates: start: 20091211
  10. DECADRON [Concomitant]
  11. BENADRYL (UNITED STATES) [Concomitant]
  12. ZOFRAN [Concomitant]
  13. ZANTAC [Concomitant]

REACTIONS (1)
  - Death [Fatal]
